FAERS Safety Report 4525472-3 (Version None)
Quarter: 2004Q4

REPORT INFORMATION
  Report Type: 
  Country: None (occurrence: None)
  Receive Date: 20041210
  Receipt Date: 20041201
  Transmission Date: 20050328
  Serious: No
  Sender: FDA-Public Use
  Company Number: 2004UW24381

PATIENT
  Age: 44 Year
  Sex: Male

DRUGS (7)
  1. CRESTOR [Suspect]
     Dosage: 20 MG QD PO
     Route: 048
     Dates: start: 20031103
  2. CRESTOR [Suspect]
     Dosage: 40 MG QD PO
     Route: 048
     Dates: start: 20031115
  3. CRESTOR [Suspect]
     Dosage: 20 MG DAILY PO
     Route: 048
     Dates: start: 20041125
  4. MEVACOR [Concomitant]
  5. LIPITOR [Concomitant]
  6. BAYCOL [Concomitant]
  7. ATIVAN [Concomitant]

REACTIONS (10)
  - ABDOMINAL PAIN UPPER [None]
  - ASTHENIA [None]
  - BLOOD AMYLASE INCREASED [None]
  - BLOOD CHOLESTEROL INCREASED [None]
  - BLOOD TRIGLYCERIDES DECREASED [None]
  - CHOLELITHIASIS [None]
  - FATIGUE [None]
  - HYPOTONIA [None]
  - PAIN [None]
  - PAIN IN EXTREMITY [None]
